FAERS Safety Report 7535685-4 (Version None)
Quarter: 2011Q2

REPORT INFORMATION
  Report Type: 
  Country: None (occurrence: None)
  Receive Date: 20110602
  Receipt Date: 20110321
  Transmission Date: 20111010
  Serious: Yes (Other)
  Sender: FDA-Public Use
  Company Number: 2011IP000049

PATIENT
  Age: 75 Year
  Sex: Female

DRUGS (4)
  1. BEPREVE [Suspect]
     Indication: OCULAR DISCOMFORT
     Dosage: 1 GTT, OPH
     Route: 047
     Dates: start: 20110315, end: 20110317
  2. SYSTANE /00553001/ [Concomitant]
  3. ARTIFICIAL TEARS [Concomitant]
  4. LIPITOR [Concomitant]

REACTIONS (1)
  - DRUG HYPERSENSITIVITY [None]
